FAERS Safety Report 6449346-6 (Version None)
Quarter: 2009Q4

REPORT INFORMATION
  Report Type: 
  Country: None (occurrence: None)
  Receive Date: 20091120
  Receipt Date: 20081126
  Transmission Date: 20100525
  Serious: Yes (Other)
  Sender: FDA-Public Use
  Company Number: US-AMGEN-QUU321016

PATIENT
  Sex: Male
  Weight: 90.8 kg

DRUGS (6)
  1. ENBREL [Suspect]
     Indication: RHEUMATOID ARTHRITIS
  2. HUMIRA [Suspect]
     Dates: start: 20071126, end: 20080204
  3. LANSOPRAZOLE [Concomitant]
     Route: 048
  4. FOLIC ACID [Concomitant]
  5. PREDNISONE [Concomitant]
     Route: 048
  6. UNSPECIFIED NON-STEROIDAL ANTI-INFLAMMATORY AGENT [Concomitant]
     Route: 048

REACTIONS (9)
  - ANAEMIA [None]
  - ASTHENIA [None]
  - CHEST PAIN [None]
  - ERYTHEMA [None]
  - HEADACHE [None]
  - MALIGNANT MELANOMA [None]
  - OEDEMA PERIPHERAL [None]
  - SKIN LESION [None]
  - WEIGHT DECREASED [None]
